FAERS Safety Report 5246725-X (Version None)
Quarter: 2007Q1

REPORT INFORMATION
  Report Type: 
  Country: None (occurrence: None)
  Receive Date: 20070220
  Receipt Date: 20070209
  Transmission Date: 20070707
  Serious: Yes (Hospitalization)
  Sender: FDA-Public Use
  Company Number: 2007PV029786

PATIENT
  Age: 78 Year
  Sex: Female
  Weight: 113.3993 kg

DRUGS (3)
  1. BYETTA [Suspect]
     Indication: DIABETES MELLITUS NON-INSULIN-DEPENDENT
     Dosage: 10 MCG;BID;SC; 5 MCG;BID;SC
     Route: 058
     Dates: start: 20060601, end: 20060701
  2. BYETTA [Suspect]
     Indication: DIABETES MELLITUS NON-INSULIN-DEPENDENT
     Dosage: 10 MCG;BID;SC; 5 MCG;BID;SC
     Route: 058
     Dates: start: 20060701
  3. PRANDIN [Concomitant]

REACTIONS (1)
  - PNEUMONIA [None]
